FAERS Safety Report 7261551-8 (Version None)
Quarter: 2011Q1

REPORT INFORMATION
  Report Type: 
  Country: None (occurrence: None)
  Receive Date: 20110130
  Receipt Date: 20100922
  Transmission Date: 20110831
  Serious: No
  Sender: FDA-Public Use
  Company Number: US-ABBOTT-10P-163-0672696-00

PATIENT
  Age: 50 Year
  Sex: Female

DRUGS (6)
  1. HUMIRA [Suspect]
     Indication: CROHN'S DISEASE
     Dates: start: 20100701
  2. GLUCOPHAGE [Concomitant]
     Indication: DIABETES MELLITUS
  3. SIMVASTATIN [Concomitant]
     Indication: BLOOD CHOLESTEROL INCREASED
  4. TRAMADOL HCL [Concomitant]
     Indication: PAIN
  5. DILTIAZEM CD [Concomitant]
     Indication: BLOOD PRESSURE
  6. KLONOPIN [Concomitant]
     Indication: ANXIETY

REACTIONS (5)
  - EYE SWELLING [None]
  - SPUTUM DISCOLOURED [None]
  - SNEEZING [None]
  - THROAT IRRITATION [None]
  - RHINORRHOEA [None]
